FAERS Safety Report 18626251 (Version 6)
Quarter: 2025Q1

REPORT INFORMATION
  Report Type: Report from Study
  Country: DE (occurrence: DE)
  Receive Date: 20201217
  Receipt Date: 20250110
  Transmission Date: 20250409
  Serious: Yes (Other)
  Sender: ALEXION PHARMACEUTICALS
  Company Number: 2020SF64541

PATIENT
  Age: 68 Year
  Weight: 88.8 kg

DRUGS (28)
  1. FASLODEX [Suspect]
     Active Substance: FULVESTRANT
     Indication: Hormone receptor positive HER2 negative breast cancer
     Dosage: 500 MILLIGRAM, Q2W
     Route: 030
  2. FASLODEX [Suspect]
     Active Substance: FULVESTRANT
     Dosage: 500 MILLIGRAM, Q2W
  3. FASLODEX [Suspect]
     Active Substance: FULVESTRANT
     Dosage: 500 MILLIGRAM, Q2W
     Route: 030
  4. FASLODEX [Suspect]
     Active Substance: FULVESTRANT
     Dosage: 500 MILLIGRAM, Q2W
  5. FASLODEX [Suspect]
     Active Substance: FULVESTRANT
     Dosage: 500 MILLIGRAM, UNK, FREQUENCY: Q4WK
     Route: 030
  6. FASLODEX [Suspect]
     Active Substance: FULVESTRANT
     Dosage: 500 MILLIGRAM, UNK, FREQUENCY: Q4WK
  7. FASLODEX [Suspect]
     Active Substance: FULVESTRANT
     Dosage: 500 MILLIGRAM, UNK, FREQUENCY: Q4WK
     Route: 030
  8. FASLODEX [Suspect]
     Active Substance: FULVESTRANT
     Dosage: 500 MILLIGRAM, UNK, FREQUENCY: Q4WK
  9. KISQALI [Suspect]
     Active Substance: RIBOCICLIB
     Indication: Breast cancer metastatic
     Dosage: 600 MG, QD (SCHEMA 21 DAYS INTAKE, 7 DAYS PAUSE)
     Route: 048
  10. KISQALI [Suspect]
     Active Substance: RIBOCICLIB
     Indication: Hormone receptor positive HER2 negative breast cancer
     Dosage: 600 MG, QD (SCHEMA 21 DAYS INTAKE, 7 DAYS PAUSE)
  11. KISQALI [Suspect]
     Active Substance: RIBOCICLIB
     Indication: Hormone receptor positive HER2 negative breast cancer
     Dosage: 600 MG, QD (SCHEME 21 DAYS, 7 DAYS PAUSE)
  12. KISQALI [Suspect]
     Active Substance: RIBOCICLIB
     Dosage: 600 MG, QD (SCHEME 21 DAYS, 7 DAYS PAUSE)
     Route: 048
  13. KISQALI [Suspect]
     Active Substance: RIBOCICLIB
     Dosage: 600 MG, QD (SCHEME 21 DAYS, 7 DAYS PAUSE)
  14. KISQALI [Suspect]
     Active Substance: RIBOCICLIB
     Dosage: 600 MG, QD (SCHEME 21 DAYS, 7 DAYS PAUSE)
     Route: 048
  15. KISQALI [Suspect]
     Active Substance: RIBOCICLIB
     Dosage: 600 MG, QD (SCHEME 21 DAYS, 7 DAYS PAUSE)
  16. KISQALI [Suspect]
     Active Substance: RIBOCICLIB
     Dosage: 600 MG, QD (SCHEME 21 DAYS, 7 DAYS PAUSE)
     Route: 048
  17. KISQALI [Suspect]
     Active Substance: RIBOCICLIB
     Dosage: 400 MG, QD (SCHEME 21 DAYS, 7 DAYS PAUSE)
  18. KISQALI [Suspect]
     Active Substance: RIBOCICLIB
     Dosage: 400 MG, QD (SCHEME 21 DAYS, 7 DAYS PAUSE)
     Route: 048
  19. KISQALI [Suspect]
     Active Substance: RIBOCICLIB
     Dosage: 400 MG, QD (SCHEME 21 DAYS, 7 DAYS PAUSE)
  20. KISQALI [Suspect]
     Active Substance: RIBOCICLIB
     Dosage: 400 MG, QD (SCHEME 21 DAYS, 7 DAYS PAUSE)
     Route: 048
  21. KISQALI [Suspect]
     Active Substance: RIBOCICLIB
     Dosage: 200 MG, QD (SCHEME 21 DAYS, 7 DAYS PAUSE) (STOP DATE: 07 DEC 2021)
     Route: 048
  22. KISQALI [Suspect]
     Active Substance: RIBOCICLIB
     Dosage: 200 MG, QD (SCHEME 21 DAYS, 7 DAYS PAUSE) (STOP DATE: 07 DEC 2021)
  23. KISQALI [Suspect]
     Active Substance: RIBOCICLIB
     Dosage: 200 MG, QD (SCHEMA 21 DAYS INTAKE, 7 DAYS PAUSE)(STOP DATE: 07 DEC 2021)
     Route: 065
  24. KISQALI [Suspect]
     Active Substance: RIBOCICLIB
     Dosage: 200 MG, QD (SCHEMA 21 DAYS INTAKE, 7 DAYS PAUSE)(STOP DATE: 07 DEC 2021)
     Route: 065
  25. KISQALI [Suspect]
     Active Substance: RIBOCICLIB
     Dosage: 200 MG, QD (SCHEMA 21 DAYS INTAKE, 7 DAYS PAUSE) (STOP DATE: 07 DEC 2021)
  26. KISQALI [Suspect]
     Active Substance: RIBOCICLIB
     Dosage: 200 MG, QD (SCHEMA 21 DAYS INTAKE, 7 DAYS PAUSE) (STOP DATE: 07 DEC 2021)
     Route: 048
  27. LETROZOLE [Suspect]
     Active Substance: LETROZOLE
     Indication: Hormone receptor positive HER2 negative breast cancer
     Dosage: 2.5 MG, QD (LAST DOSE RECEIVED ON 06 AUG 2019)
     Route: 048
  28. LETROZOLE [Suspect]
     Active Substance: LETROZOLE
     Indication: Hormone receptor positive HER2 negative breast cancer
     Dosage: 2.5 MG, QD (LAST DOSE RECEIVED ON 06 AUG 2019)

REACTIONS (24)
  - Arrhythmia [Unknown]
  - Chest pain [Unknown]
  - Supraventricular extrasystoles [Unknown]
  - Dyspnoea exertional [Recovered/Resolved]
  - Neutropenia [Recovered/Resolved]
  - Leukopenia [Recovered/Resolved]
  - Heart rate increased [Recovered/Resolved]
  - Thrombocytopenia [Recovered/Resolved]
  - Electrocardiogram QT prolonged [Unknown]
  - Blood pressure systolic increased [Recovered/Resolved]
  - Blood pressure diastolic decreased [Recovered/Resolved]
  - Pulmonary embolism [Unknown]
  - Pulmonary valve incompetence [Unknown]
  - Tricuspid valve incompetence [Unknown]
  - Myocardial infarction [Unknown]
  - Dry mouth [Not Recovered/Not Resolved]
  - Sensory disturbance [Not Recovered/Not Resolved]
  - Blood potassium increased [Unknown]
  - QRS axis abnormal [Unknown]
  - Oedema peripheral [Unknown]
  - Dizziness [Recovered/Resolved]
  - Supraventricular tachycardia [Unknown]
  - Sinus bradycardia [Unknown]
  - Paraesthesia [Recovered/Resolved]
